FAERS Safety Report 20583522 (Version 1)
Quarter: 2022Q1

REPORT INFORMATION
  Report Type: Spontaneous
  Country: US (occurrence: US)
  Receive Date: 20220311
  Receipt Date: 20220311
  Transmission Date: 20220424
  Serious: Yes (Other)
  Sender: FDA-Public Use
  Company Number: US-INNOCOLL PHARMACEUTICALS LIMITED-2022INN00001

PATIENT
  Age: 42 Year
  Sex: Male

DRUGS (1)
  1. BUPIVACAINE HYDROCHLORIDE [Suspect]
     Active Substance: BUPIVACAINE HYDROCHLORIDE
     Indication: Anaesthesia
     Route: 065

REACTIONS (2)
  - Haemolytic anaemia [Recovered/Resolved]
  - Methaemoglobinaemia [Recovered/Resolved]
